FAERS Safety Report 9861627 (Version 1)
Quarter: 2014Q1

REPORT INFORMATION
  Report Type: Spontaneous
  Country: US (occurrence: US)
  Receive Date: 20140203
  Receipt Date: 20140203
  Transmission Date: 20141002
  Serious: Yes (Hospitalization)
  Sender: FDA-Public Use
  Company Number: US-BIOGENIDEC-2014BI010254

PATIENT
  Sex: Male

DRUGS (7)
  1. AVONEX [Suspect]
     Indication: MULTIPLE SCLEROSIS
     Route: 030
     Dates: start: 20110531
  2. ADDERALL [Concomitant]
  3. ADVIL [Concomitant]
  4. ALEVE [Concomitant]
  5. AMOXICILLIN [Concomitant]
  6. PAXIL [Concomitant]
  7. TRAZODONE HCL [Concomitant]

REACTIONS (1)
  - Hypertension [Unknown]
